FAERS Safety Report 4339753-X (Version None)
Quarter: 2004Q2

REPORT INFORMATION
  Report Type: 
  Country: None (occurrence: None)
  Receive Date: 20040415
  Receipt Date: 20040415
  Transmission Date: 20050107
  Serious: No
  Sender: FDA-Public Use
  Company Number: None

PATIENT
  Sex: Male
  Weight: 25.855 kg

DRUGS (1)
  1. STRATTERA [Suspect]
     Indication: ATTENTION DEFICIT/HYPERACTIVITY DISORDER
     Dosage: 1 PER MORNIN DAILY ORAL
     Route: 048
     Dates: start: 20040322, end: 20040414

REACTIONS (3)
  - ABNORMAL BEHAVIOUR [None]
  - INSOMNIA [None]
  - PERSONALITY CHANGE [None]
